FAERS Safety Report 9625910 (Version 1)
Quarter: 2013Q4

REPORT INFORMATION
  Report Type: Spontaneous
  Country: US (occurrence: None)
  Receive Date: 20131015
  Receipt Date: 20131015
  Transmission Date: 20140711
  Serious: Yes (Hospitalization, Disabling, Other)
  Sender: FDA-Public Use
  Company Number: None

PATIENT
  Age: 50 Year
  Sex: Female
  Weight: 44.45 kg

DRUGS (1)
  1. CIPRO [Suspect]
     Indication: GASTROINTESTINAL INFECTION
     Dosage: 1 TABLET; TWICE DAILY
     Route: 048
     Dates: start: 20111028, end: 20111029

REACTIONS (14)
  - Arthralgia [None]
  - Joint swelling [None]
  - Abasia [None]
  - Tendon pain [None]
  - Arthralgia [None]
  - Fatigue [None]
  - Insomnia [None]
  - Anxiety [None]
  - Weight decreased [None]
  - Muscle atrophy [None]
  - Tinnitus [None]
  - Headache [None]
  - Visual impairment [None]
  - Erythema [None]
